FAERS Safety Report 8482817-X (Version None)
Quarter: 2012Q3

REPORT INFORMATION
  Report Type: 
  Country: None (occurrence: None)
  Receive Date: 20120702
  Receipt Date: 20120621
  Transmission Date: 20120928
  Serious: Yes (Hospitalization)
  Sender: FDA-Public Use
  Company Number: US-ASTRAZENECA-2010SE17766

PATIENT
  Age: 52 Year
  Sex: Female

DRUGS (2)
  1. RHINOCORT [Suspect]
     Route: 045
  2. SYMBICORT [Suspect]
     Dosage: 160/4.5 MCG 2 PUFFS TWICE DAILY
     Route: 055

REACTIONS (5)
  - DYSPNOEA [None]
  - ASTHMA [None]
  - EMOTIONAL DISTRESS [None]
  - MALAISE [None]
  - DRUG DOSE OMISSION [None]
